FAERS Safety Report 8979353 (Version 1)
Quarter: 2012Q4

REPORT INFORMATION
  Report Type: 
  Country: JP (occurrence: JP)
  Receive Date: 20121221
  Receipt Date: 20121221
  Transmission Date: 20130627
  Serious: Yes (Hospitalization)
  Sender: FDA-Public Use
  Company Number: JP-NOVOPROD-365796

PATIENT
  Age: 54 Year
  Sex: Female

DRUGS (1)
  1. VICTOZA HIKACHU INJECTION [Suspect]
     Indication: DIABETES MELLITUS
     Dosage: unknown
     Route: 058
     Dates: start: 201110

REACTIONS (1)
  - Pancreatic carcinoma [Unknown]
